FAERS Safety Report 6480257-6 (Version None)
Quarter: 2009Q4

REPORT INFORMATION
  Report Type: 
  Country: None (occurrence: None)
  Receive Date: 20091202
  Receipt Date: 20091118
  Transmission Date: 20100525
  Serious: Yes (Hospitalization, Disabling, Other)
  Sender: FDA-Public Use
  Company Number: HECT-1000067

PATIENT
  Age: 66 Year
  Sex: Female
  Weight: 90.7 kg

DRUGS (23)
  1. HECTOROL [Suspect]
     Indication: SECONDARY HYPOTHYROIDISM
     Dosage: 2 MCG/ML, QD
  2. CLONIDINE [Concomitant]
  3. DICLOFENAC (DICLOFENAC) [Concomitant]
  4. CRESTOR [Concomitant]
  5. TEHTAMA HCT [Concomitant]
  6. CLARITIN [Concomitant]
  7. CEREFOLIN NAC [Concomitant]
  8. AMIODARONE HCL [Concomitant]
  9. AZOR (ALPRAZOLAM) [Concomitant]
  10. JANUVIA [Concomitant]
  11. ACTOS [Concomitant]
  12. LEVOTHYROXINE SODIUM [Concomitant]
  13. MINOXIDIL [Concomitant]
  14. LASIX [Concomitant]
  15. LISINOPRIL [Concomitant]
  16. VANCOMYCIN [Concomitant]
  17. LEVEMIR [Concomitant]
  18. FAMVIR [Concomitant]
  19. PROTONIX [Concomitant]
  20. ATENOLOL [Concomitant]
  21. NOVOLOG [Concomitant]
  22. PROCRIT [Concomitant]
  23. GLUCERNA (AMINO ACIDS NOS, CARTHAMUS TINCTORIUS OIL, FRUCTOSE, GLYCINE [Concomitant]

REACTIONS (7)
  - BLOOD PRESSURE DECREASED [None]
  - DEPRESSED LEVEL OF CONSCIOUSNESS [None]
  - DYSPHAGIA [None]
  - GASTROINTESTINAL TUBE INSERTION [None]
  - OXYGEN SATURATION DECREASED [None]
  - RALES [None]
  - SEPSIS [None]
